FAERS Safety Report 6588995-1 (Version None)
Quarter: 2010Q1

REPORT INFORMATION
  Report Type: 
  Country: None (occurrence: None)
  Receive Date: 20100212
  Receipt Date: 20100127
  Transmission Date: 20100710
  Serious: Yes (Hospitalization, Other)
  Sender: FDA-Public Use
  Company Number: ACO_0204_2005

PATIENT
  Age: 45 Year
  Sex: Female
  Weight: 57 kg

DRUGS (3)
  1. TIZANIDINE HYDROCHLORIDE [Suspect]
     Indication: MULTIPLE SCLEROSIS
     Dosage: (3 MG, PER DAY ORAL)
     Route: 048
     Dates: start: 19920101
  2. CIPROFLOXACIN HYDROCHLORIDE [Suspect]
     Indication: PYURIA
     Dosage: (400 MG, PER DAY ORAL)
     Route: 048
  3. PREDNISOLONE [Concomitant]

REACTIONS (12)
  - BLOOD PRESSURE DECREASED [None]
  - BODY TEMPERATURE DECREASED [None]
  - DISEASE RECURRENCE [None]
  - DYSPHORIA [None]
  - GAIT DISTURBANCE [None]
  - HEART RATE DECREASED [None]
  - MULTIPLE SCLEROSIS [None]
  - PAIN IN EXTREMITY [None]
  - PYURIA [None]
  - RESIDUAL URINE [None]
  - SOMNOLENCE [None]
  - URINE OUTPUT DECREASED [None]
